FAERS Safety Report 9500732 (Version 1)
Quarter: 2013Q3

REPORT INFORMATION
  Report Type: Spontaneous
  Country: US (occurrence: US)
  Receive Date: 20130905
  Receipt Date: 20130905
  Transmission Date: 20140515
  Serious: Yes (Hospitalization)
  Sender: FDA-Public Use
  Company Number: US-ASTRAZENECA-2013SE66770

PATIENT
  Age: 43 Year
  Sex: Male

DRUGS (12)
  1. METOPROLOL [Suspect]
     Indication: BLOOD PRESSURE ABNORMAL
     Route: 048
  2. LISINOPRIL [Suspect]
     Indication: BLOOD PRESSURE ABNORMAL
     Route: 048
  3. NEXIUM [Suspect]
     Indication: GASTRITIS
     Route: 048
     Dates: start: 20130812
  4. NEXIUM [Suspect]
     Indication: ULCER
     Route: 048
     Dates: start: 20130812
  5. MOTRIN [Suspect]
     Route: 065
  6. TYLENOL [Suspect]
     Route: 065
  7. METHODONE [Concomitant]
     Route: 048
     Dates: end: 201307
  8. BENLAFAXINE [Concomitant]
     Indication: DEPRESSION
     Dosage: 150 MG QDPM
     Route: 048
     Dates: start: 2010
  9. SIMVASTATIN [Concomitant]
     Indication: BLOOD CHOLESTEROL ABNORMAL
     Route: 048
  10. LEVOTHYROXINE [Concomitant]
     Indication: THYROID DISORDER
     Route: 048
     Dates: start: 2012
  11. CLONIDINE [Concomitant]
     Indication: BLOOD PRESSURE ABNORMAL
     Route: 048
     Dates: start: 201303
  12. KLONOPIN [Concomitant]
     Indication: ANXIETY
     Dosage: 0.5 TO 1 MG, AS NEEDED
     Route: 048
     Dates: start: 2003

REACTIONS (5)
  - Liver disorder [Unknown]
  - Diarrhoea [Not Recovered/Not Resolved]
  - Abdominal pain upper [Not Recovered/Not Resolved]
  - Nausea [Recovered/Resolved]
  - Intentional drug misuse [Unknown]
